FAERS Safety Report 15114522 (Version 2)
Quarter: 2018Q3

REPORT INFORMATION
  Report Type: Spontaneous
  Country: GB (occurrence: GB)
  Receive Date: 20180706
  Receipt Date: 20180713
  Transmission Date: 20181010
  Serious: Yes (Other)
  Sender: FDA-Public Use
  Company Number: GB-PFIZER INC-2018265499

PATIENT
  Age: 24 Year
  Sex: Male

DRUGS (3)
  1. VORICONAZOLE. [Suspect]
     Active Substance: VORICONAZOLE
     Indication: FUNGAL INFECTION
     Dosage: UNK
     Route: 055
  2. CASPOFUNGIN [Suspect]
     Active Substance: CASPOFUNGIN
     Indication: FUNGAL INFECTION
     Dosage: UNK
     Route: 042
  3. TERBINAFINE. [Suspect]
     Active Substance: TERBINAFINE
     Indication: FUNGAL INFECTION
     Dosage: UNK
     Route: 048

REACTIONS (2)
  - Incorrect route of drug administration [Unknown]
  - Drug ineffective [Unknown]
